FAERS Safety Report 15327143 (Version 2)
Quarter: 2018Q3

REPORT INFORMATION
  Report Type: Report from Study
  Country: DE (occurrence: DE)
  Receive Date: 20180828
  Receipt Date: 20180904
  Transmission Date: 20181010
  Serious: Yes (Other)
  Sender: FDA-Public Use
  Company Number: DE-BAYER-2018-131197

PATIENT
  Age: 24 Year
  Sex: Female

DRUGS (15)
  1. PREDNISOLONE. [Suspect]
     Active Substance: PREDNISOLONE
     Dosage: GESTATIONAL WEEK 0?14
  2. METAMIZOLE [Suspect]
     Active Substance: METAMIZOLE
     Dosage: GESTATIONAL WEEK 0?14
  3. NICOTINE. [Suspect]
     Active Substance: NICOTINE
     Dosage: GESTATIONAL WEEK 0?14
  4. ENOXAPARIN [Concomitant]
     Active Substance: ENOXAPARIN
     Dosage: GESTATIONAL WEEK 0?14
  5. PANTOPRAZOLE [Suspect]
     Active Substance: PANTOPRAZOLE
     Dosage: GESTATIONAL WEEK 0?14
  6. ACETYLSALICYLIC ACID({=100 MG) [Suspect]
     Active Substance: ASPIRIN
     Dosage: GESTATIONAL WEEK 0?14
  7. SALBUTAMOL [Suspect]
     Active Substance: ALBUTEROL
     Dosage: GESTATIONAL WEEK 0?14
  8. SIMVASTATIN. [Suspect]
     Active Substance: SIMVASTATIN
     Dosage: GESTATIONAL WEEK 0?14
  9. RAMIPRIL. [Suspect]
     Active Substance: RAMIPRIL
     Dosage: 20 MG, GESTATIONAL WEEK 0?13+6
  10. RIVAROXABAN [Suspect]
     Active Substance: RIVAROXABAN
     Dosage: GESTATIONAL WEEK 0?5
  11. TORASEMIDE [Suspect]
     Active Substance: TORSEMIDE
     Dosage: GESTATIONAL WEEK 0?14
  12. ALISKIREN [Suspect]
     Active Substance: ALISKIREN
     Dosage: GESTATIONAL WEEK 0?5
  13. HYDROXYCHLOROQUINE [Suspect]
     Active Substance: HYDROXYCHLOROQUINE
     Dosage: GESTATIONAL WEEK 0?14
  14. TACROLIMUS. [Suspect]
     Active Substance: TACROLIMUS
     Dosage: GESTATIONAL WEEK 0?14
  15. EZETIMIBE. [Suspect]
     Active Substance: EZETIMIBE
     Dosage: GESTATIONAL WEEK 0?14

REACTIONS (4)
  - Medication monitoring error [None]
  - Contraindicated product administered [None]
  - Maternal exposure during pregnancy [None]
  - Abortion induced [None]
